FAERS Safety Report 5385558-0 (Version None)
Quarter: 2007Q3

REPORT INFORMATION
  Report Type: 
  Country: None (occurrence: None)
  Receive Date: 20070712
  Receipt Date: 20070709
  Transmission Date: 20080115
  Serious: Yes (Life-Threatening)
  Sender: FDA-Public Use
  Company Number: B0478683A

PATIENT
  Age: 21 Year
  Sex: Male

DRUGS (1)
  1. AUGMENTIN '125' [Suspect]
     Indication: UPPER RESPIRATORY TRACT INFECTION
     Dosage: 625MG TWICE PER DAY
     Route: 048
     Dates: start: 20070630, end: 20070630

REACTIONS (2)
  - ANGIOEDEMA [None]
  - SWELLING [None]
